FAERS Safety Report 15646193 (Version 3)
Quarter: 2019Q1

REPORT INFORMATION
  Report Type: Spontaneous
  Country: US (occurrence: US)
  Receive Date: 20181122
  Receipt Date: 20190122
  Transmission Date: 20190417
  Serious: Yes (Hospitalization, Other)
  Sender: FDA-Public Use
  Company Number: US-BIOGEN-2015BI119772

PATIENT
  Age: 62 Year
  Sex: Male

DRUGS (2)
  1. AVONEX [Suspect]
     Active Substance: INTERFERON BETA-1A
     Indication: MULTIPLE SCLEROSIS
     Route: 030
     Dates: start: 19991201
  2. AVONEX [Suspect]
     Active Substance: INTERFERON BETA-1A
     Route: 030
     Dates: start: 2001

REACTIONS (5)
  - Ligament sprain [Recovered/Resolved]
  - Feeling abnormal [Not Recovered/Not Resolved]
  - Road traffic accident [Recovered/Resolved]
  - Craniocerebral injury [Unknown]
  - Muscle rupture [Recovered/Resolved]

NARRATIVE: CASE EVENT DATE: 201507
